FAERS Safety Report 8715202 (Version 4)
Quarter: 2012Q4

REPORT INFORMATION
  Report Type: 
  Country: JP (occurrence: JP)
  Receive Date: 20120809
  Receipt Date: 20120906
  Transmission Date: 20130627
  Serious: Yes (Other)
  Sender: FDA-Public Use
  Company Number: JP-PFIZER INC-2012192526

PATIENT
  Age: 48 Year
  Sex: Female
  Weight: 48 kg

DRUGS (1)
  1. CHAMPIX [Suspect]
     Indication: NICOTINE DEPENDENCE
     Dosage: 0.5 mg, 1x/day
     Route: 048
     Dates: start: 20120807, end: 20120807

REACTIONS (9)
  - Depressed level of consciousness [Recovered/Resolved]
  - Ataxia [Recovered/Resolved]
  - Gait disturbance [Recovered/Resolved]
  - Nausea [Recovered/Resolved]
  - Cough [Recovered/Resolved]
  - Hyperhidrosis [Recovered/Resolved]
  - Vomiting [Recovered/Resolved]
  - Dizziness [Recovered/Resolved]
  - Headache [Recovered/Resolved]
